FAERS Safety Report 6279174-6 (Version None)
Quarter: 2009Q3

REPORT INFORMATION
  Report Type: 
  Country: None (occurrence: None)
  Receive Date: 20090723
  Receipt Date: 20090716
  Transmission Date: 20100115
  Serious: Yes (Death, Hospitalization)
  Sender: FDA-Public Use
  Company Number: JP-BAYER-200912059BYL

PATIENT
  Age: 66 Year
  Sex: Male

DRUGS (11)
  1. NEXAVAR [Suspect]
     Indication: HEPATIC NEOPLASM MALIGNANT
     Dosage: TOTAL DAILY DOSE: 800 MG  UNIT DOSE: 200 MG
     Route: 048
     Dates: start: 20090604, end: 20090617
  2. FAMOTIDINE [Concomitant]
     Route: 065
  3. URSO 250 [Concomitant]
     Route: 048
  4. GLYCYRRHIZIN [Concomitant]
     Route: 065
  5. LACTOMIN [Concomitant]
     Route: 048
  6. BROTIZOLAM [Concomitant]
     Route: 048
  7. MAGNESIUM OXIDE [Concomitant]
     Route: 048
  8. LIVACT [Concomitant]
     Route: 048
  9. SILODOSIN [Concomitant]
     Route: 048
  10. OXYCODONE HCL [Concomitant]
     Route: 048
  11. LOXOPROFEN SODIUM [Concomitant]
     Route: 048

REACTIONS (6)
  - BLOOD AMYLASE INCREASED [None]
  - ERYTHEMA MULTIFORME [None]
  - HEPATIC FUNCTION ABNORMAL [None]
  - HYPOMAGNESAEMIA [None]
  - HYPOPHOSPHATAEMIA [None]
  - METABOLIC ENCEPHALOPATHY [None]
